FAERS Safety Report 7513705-0 (Version None)
Quarter: 2011Q2

REPORT INFORMATION
  Report Type: 
  Country: None (occurrence: None)
  Receive Date: 20110531
  Receipt Date: 20110520
  Transmission Date: 20111010
  Serious: Yes (Hospitalization)
  Sender: FDA-Public Use
  Company Number: US-ASTRAZENECA-2011SE12989

PATIENT
  Age: 58 Year
  Sex: Female

DRUGS (7)
  1. ACCOLATE [Suspect]
     Indication: ASTHMA
     Route: 048
     Dates: start: 19980101
  2. PRAVASTATIN [Concomitant]
  3. SYMBICORT [Suspect]
     Indication: EMPHYSEMA
     Route: 055
     Dates: start: 20090101
  4. TRILIPIX [Concomitant]
  5. SYMBICORT [Suspect]
     Indication: CHRONIC OBSTRUCTIVE PULMONARY DISEASE
     Route: 055
     Dates: start: 20090101
  6. DIAZEPAM [Concomitant]
  7. NEXIUM [Suspect]
     Indication: GASTROOESOPHAGEAL REFLUX DISEASE
     Route: 048
     Dates: start: 20070101

REACTIONS (8)
  - CHRONIC OBSTRUCTIVE PULMONARY DISEASE [None]
  - DIVERTICULITIS [None]
  - EMPHYSEMA [None]
  - NUCLEAR MAGNETIC RESONANCE IMAGING [None]
  - WEIGHT DECREASED [None]
  - NERVE COMPRESSION [None]
  - ARTHRITIS [None]
  - SPONDYLITIS [None]
